FAERS Safety Report 7646860-2 (Version None)
Quarter: 2011Q3

REPORT INFORMATION
  Report Type: 
  Country: None (occurrence: None)
  Receive Date: 20110729
  Receipt Date: 20110729
  Transmission Date: 20111222
  Serious: No
  Sender: FDA-Public Use
  Company Number: None

PATIENT
  Age: 55 Year
  Sex: Female
  Weight: 113.3993 kg

DRUGS (1)
  1. CYMBALTA [Suspect]
     Indication: NEURALGIA
     Dosage: 90 MG DAILY FOR NERVE PAIN
     Dates: start: 20110101, end: 20110701

REACTIONS (5)
  - PARAESTHESIA [None]
  - HYPERACUSIS [None]
  - PHOTOPHOBIA [None]
  - UNEVALUABLE EVENT [None]
  - NIGHTMARE [None]
